FAERS Safety Report 20530565 (Version 1)
Quarter: 2022Q1

REPORT INFORMATION
  Report Type: Spontaneous
  Country: US (occurrence: US)
  Receive Date: 20220301
  Receipt Date: 20220301
  Transmission Date: 20220424
  Serious: No
  Sender: FDA-Public Use
  Company Number: US-GSKCCFUS-Case-01306454_AE-76076

PATIENT
  Sex: Female

DRUGS (1)
  1. BENLYSTA [Suspect]
     Active Substance: BELIMUMAB
     Indication: Product used for unknown indication
     Dosage: 1 DF, WE

REACTIONS (3)
  - Wrong technique in device usage process [Unknown]
  - Accidental exposure to product [Unknown]
  - Product dose omission issue [Unknown]
